FAERS Safety Report 10029159 (Version 2)
Quarter: 2014Q1

REPORT INFORMATION
  Report Type: Report from Study
  Country: US (occurrence: US)
  Receive Date: 20140321
  Receipt Date: 20140321
  Transmission Date: 20141002
  Serious: Yes (Death, Hospitalization)
  Sender: FDA-Public Use
  Company Number: US-ABBVIE-14P-163-1196729-00

PATIENT
  Age: 85 Year
  Sex: Female

DRUGS (1)
  1. HUMIRA [Suspect]
     Indication: RHEUMATOID ARTHRITIS
     Route: 058
     Dates: start: 20130916

REACTIONS (5)
  - Musculoskeletal stiffness [Fatal]
  - Pneumonia [Fatal]
  - Clostridium difficile infection [Fatal]
  - Nuchal rigidity [Fatal]
  - Neck pain [Not Recovered/Not Resolved]
